FAERS Safety Report 9914962 (Version 1)
Quarter: 2014Q1

REPORT INFORMATION
  Report Type: Spontaneous
  Country: CZ (occurrence: CZ)
  Receive Date: 20140220
  Receipt Date: 20140220
  Transmission Date: 20141002
  Serious: Yes (Other)
  Sender: FDA-Public Use
  Company Number: PHHY2014CZ019857

PATIENT
  Age: 32 Year
  Sex: Female

DRUGS (5)
  1. TRAMADOL [Suspect]
     Indication: BACK PAIN
     Dosage: 150 MG, BID
  2. ESCITALOPRAM [Concomitant]
     Dosage: 20 MG, UNK
  3. TRAZODONE [Concomitant]
     Dosage: 150 MG, UNK
  4. QUETIAPINE [Concomitant]
     Dosage: 600 MG, UNK
  5. EUTHYROX [Concomitant]

REACTIONS (6)
  - Eating disorder [Unknown]
  - Bulimia nervosa [Unknown]
  - Weight increased [Unknown]
  - Vomiting [Unknown]
  - Back pain [Unknown]
  - Drug abuse [Unknown]
